FAERS Safety Report 9822061 (Version 1)
Quarter: 2014Q1

REPORT INFORMATION
  Report Type: Spontaneous
  Country: US (occurrence: US)
  Receive Date: 20140116
  Receipt Date: 20140116
  Transmission Date: 20141002
  Serious: Yes (Other)
  Sender: FDA-Public Use
  Company Number: US-009507513-1401USA004962

PATIENT
  Age: 81 Year
  Sex: Female

DRUGS (1)
  1. OXYTROL FOR WOMEN [Suspect]
     Indication: POLLAKIURIA
     Dosage: UNK MG, UNK
     Route: 062
     Dates: start: 2013

REACTIONS (2)
  - Cerebrovascular accident [Unknown]
  - Off label use [Unknown]
